FAERS Safety Report 6341827-9 (Version None)
Quarter: 2009Q3

REPORT INFORMATION
  Report Type: 
  Country: None (occurrence: None)
  Receive Date: 20090904
  Receipt Date: 20090831
  Transmission Date: 20100115
  Serious: Yes (Life-Threatening, Other)
  Sender: FDA-Public Use
  Company Number: US-ELI_LILLY_AND_COMPANY-US200908006766

PATIENT
  Sex: Male

DRUGS (4)
  1. ALIMTA [Suspect]
     Indication: NON-SMALL CELL LUNG CANCER
     Dosage: 500 MG/M2, UNK
     Dates: start: 20090801, end: 20090801
  2. VITAMIN B-12 [Concomitant]
     Dates: start: 20090801
  3. VITAMINS NOS [Concomitant]
     Indication: VITAMIN SUPPLEMENTATION
     Dates: start: 20090801
  4. HAEMODIALYTICS AND HAEMOFILTRATES [Concomitant]

REACTIONS (4)
  - ENDOTRACHEAL INTUBATION [None]
  - MALIGNANT PLEURAL EFFUSION [None]
  - NEUTROPENIA [None]
  - PANCYTOPENIA [None]
